FAERS Safety Report 11574305 (Version 1)
Quarter: 2015Q3

REPORT INFORMATION
  Report Type: Spontaneous
  Country: US (occurrence: None)
  Receive Date: 20150928
  Receipt Date: 20150928
  Transmission Date: 20151125
  Serious: Yes (Hospitalization)
  Sender: FDA-Public Use
  Company Number: None

PATIENT
  Age: 13 Year
  Sex: Female
  Weight: 30.8 kg

DRUGS (8)
  1. DEXAMETHASONE. [Suspect]
     Active Substance: DEXAMETHASONE
     Dates: end: 20150912
  2. HYDROCORTISONE. [Suspect]
     Active Substance: HYDROCORTISONE
     Dates: end: 20150908
  3. CYTARABINE. [Suspect]
     Active Substance: CYTARABINE
     Dates: end: 20150911
  4. METHOTREXATE [Suspect]
     Active Substance: METHOTREXATE
     Dates: end: 20150908
  5. MERCAPTOPURINE. [Suspect]
     Active Substance: MERCAPTOPURINE
     Dates: end: 20150809
  6. CYCLOPHOSPHAMIDE. [Suspect]
     Active Substance: CYCLOPHOSPHAMIDE
     Dates: end: 20150911
  7. DAUNORUBICIN [Suspect]
     Active Substance: DAUNORUBICIN
     Dates: end: 20150619
  8. ONCASPAR [Suspect]
     Active Substance: PEGASPARGASE
     Dates: end: 20150912

REACTIONS (5)
  - Tachycardia [None]
  - Infusion related reaction [None]
  - Body temperature increased [None]
  - Muscular weakness [None]
  - Sepsis [None]

NARRATIVE: CASE EVENT DATE: 20150918
